FAERS Safety Report 20356811 (Version 1)
Quarter: 2022Q1

REPORT INFORMATION
  Report Type: Spontaneous
  Country: US (occurrence: US)
  Receive Date: 20220120
  Receipt Date: 20220120
  Transmission Date: 20220423
  Serious: Yes (Other)
  Sender: FDA-Public Use
  Company Number: US-TERSERA THERAPEUTICS LLC-2019TRS001982

PATIENT

DRUGS (16)
  1. PRIALT [Suspect]
     Active Substance: ZICONOTIDE ACETATE
     Indication: Pain
     Dosage: 2.2000 MCG, QD (CONCENTRATION 2.5 MCG/ML)
     Route: 037
     Dates: start: 20160303
  2. PRIALT [Suspect]
     Active Substance: ZICONOTIDE ACETATE
     Dosage: 2.6970 MCG, QD (CONCENTRATION 3.0 MCG/ML)
     Route: 037
  3. PRIALT [Suspect]
     Active Substance: ZICONOTIDE ACETATE
     Dosage: 4.603 MCG, QD (CONCENTRATION 25.0 MCG/ML)
     Route: 037
  4. PRIALT [Suspect]
     Active Substance: ZICONOTIDE ACETATE
     Dosage: 5.105 MCG, QD (CONCENTRATION 25.0 MCG/ML)
     Route: 037
     Dates: start: 20170628
  5. PRIALT [Suspect]
     Active Substance: ZICONOTIDE ACETATE
     Dosage: 6.600 MCG, QD (CONCENTRATION 25.0 MCG/ML)
     Route: 037
  6. PRIALT [Suspect]
     Active Substance: ZICONOTIDE ACETATE
     Dosage: 0.152 MCG, QD (CONCENTRATION 25.0 MCG/ML)
     Route: 037
     Dates: start: 20180405
  7. PRIALT [Suspect]
     Active Substance: ZICONOTIDE ACETATE
     Dosage: 4.695 MCG, QD (CONCENTRATION 25.0 MCG/ML)
     Route: 037
  8. PRIALT [Suspect]
     Active Substance: ZICONOTIDE ACETATE
     Dosage: 5.195 MCG, QD (CONCENTRATION 25.0 MCG/ML)
     Route: 037
  9. PRIALT [Suspect]
     Active Substance: ZICONOTIDE ACETATE
     Dosage: 6.199 MCG, QD (CONCENTRATION 25.0 MCG/ML)
     Route: 037
  10. PRIALT [Suspect]
     Active Substance: ZICONOTIDE ACETATE
     Dosage: 5.701 MCG, QD (CONCENTRATION 25.0 MCG/ML)
     Route: 037
     Dates: start: 20201203
  11. PRIALT [Suspect]
     Active Substance: ZICONOTIDE ACETATE
     Dosage: 0.152 MCG, QD (CONCENTRATION 25.0 MCG/ML)
     Route: 037
     Dates: start: 20210106
  12. PRIALT [Suspect]
     Active Substance: ZICONOTIDE ACETATE
     Dosage: MINIMAL RATE
     Route: 037
     Dates: start: 20180405
  13. PRIALT [Suspect]
     Active Substance: ZICONOTIDE ACETATE
     Dosage: LOWER DOSE
     Route: 037
     Dates: start: 20180418
  14. PRIALT [Suspect]
     Active Substance: ZICONOTIDE ACETATE
     Dosage: MINIMAL RATE
     Route: 037
     Dates: start: 20210106
  15. HYDROMORPHONE [Suspect]
     Active Substance: HYDROMORPHONE
     Indication: Product used for unknown indication
     Dosage: 198 MCG, QD
     Route: 065
  16. HYDROMORPHONE [Suspect]
     Active Substance: HYDROMORPHONE
     Dosage: 134.85 MCG, QD (CONCENTRATION 150.0 MCG/ML)
     Route: 065
     Dates: end: 20161110

REACTIONS (10)
  - Hallucination, auditory [Recovered/Resolved]
  - Hallucination, visual [Recovered/Resolved]
  - Back pain [Recovered/Resolved]
  - Dyskinesia [Recovered/Resolved]
  - Pain in extremity [Recovered/Resolved]
  - Dry mouth [Recovered/Resolved]
  - Fatigue [Recovered/Resolved]
  - Confusional state [Recovered/Resolved]
  - Somnolence [Recovered/Resolved]
  - Off label use [Unknown]

NARRATIVE: CASE EVENT DATE: 20160101
